FAERS Safety Report 6565433-6 (Version None)
Quarter: 2010Q1

REPORT INFORMATION
  Report Type: 
  Country: None (occurrence: None)
  Receive Date: 20100201
  Receipt Date: 20100121
  Transmission Date: 20100710
  Serious: Yes (Hospitalization, Other)
  Sender: FDA-Public Use
  Company Number: PHHY2010BR03467

PATIENT
  Sex: Female
  Weight: 50 kg

DRUGS (6)
  1. EXELON [Suspect]
     Indication: DEMENTIA ALZHEIMER'S TYPE
     Dosage: 9MG/5CM2, 1 DF, QD
     Route: 062
  2. SEROQUEL [Concomitant]
     Dosage: 0.5 DF AT 10.00 PM
  3. SEROQUEL [Concomitant]
     Dosage: 25 MG, BID
  4. CLEXANE [Concomitant]
     Dosage: DAILY
  5. MINERAL OIL [Concomitant]
     Indication: CONSTIPATION
     Dosage: 1 SOUP SPOON AS PER NEED
  6. LORAZEPAM [Concomitant]
     Dosage: 0.5 MG, PRN

REACTIONS (2)
  - GASTROSTOMY [None]
  - SOCIAL AVOIDANT BEHAVIOUR [None]
